FAERS Safety Report 8835131 (Version 1)
Quarter: 2012Q4

REPORT INFORMATION
  Report Type: 
  Country: ES (occurrence: ES)
  Receive Date: 20121011
  Receipt Date: 20121011
  Transmission Date: 20130627
  Serious: Yes (Other)
  Sender: FDA-Public Use
  Company Number: ES-SANOFI-AVENTIS-2012SA073116

PATIENT
  Age: 48 Year
  Sex: Male

DRUGS (6)
  1. CLEXANE [Suspect]
     Indication: THROMBOSIS PROPHYLAXIS
     Route: 058
     Dates: start: 20120206, end: 20120216
  2. CIPROFLOXACIN [Concomitant]
     Indication: ABSCESS
     Route: 042
     Dates: start: 20120210
  3. ANTIBIOTICS [Concomitant]
     Indication: ABSCESS
     Route: 042
     Dates: start: 20120210
  4. CLINDAMYCIN [Concomitant]
     Indication: ABSCESS
     Route: 042
     Dates: start: 20120206, end: 20120210
  5. LEVOFLOXACIN [Concomitant]
     Indication: ABSCESS
     Route: 042
     Dates: start: 20120206, end: 20120210
  6. TIAPRIDE HYDROCHLORIDE [Concomitant]
     Indication: DRUG USE FOR UNKNOWN INDICATION
     Route: 042
     Dates: start: 20120206, end: 20120210

REACTIONS (1)
  - Hepatitis [Recovered/Resolved]
